FAERS Safety Report 6708391-3 (Version None)
Quarter: 2010Q2

REPORT INFORMATION
  Report Type: 
  Country: None (occurrence: None)
  Receive Date: 20100503
  Receipt Date: 20081002
  Transmission Date: 20101027
  Serious: No
  Sender: FDA-Public Use
  Company Number: US-ASTRAZENECA-2008UW21319

PATIENT
  Age: 76 Year
  Sex: Female

DRUGS (4)
  1. NEXIUM [Suspect]
     Route: 048
     Dates: start: 20080320, end: 20080331
  2. SYNTHROID [Concomitant]
  3. TENORMIN [Concomitant]
  4. CRESTOR [Concomitant]

REACTIONS (9)
  - ABDOMINAL PAIN LOWER [None]
  - DIARRHOEA [None]
  - FAECES DISCOLOURED [None]
  - FREQUENT BOWEL MOVEMENTS [None]
  - ORAL DISCOMFORT [None]
  - PRURITUS [None]
  - RASH [None]
  - STOMATITIS [None]
  - URTICARIA [None]
